FAERS Safety Report 4788838-2 (Version None)
Quarter: 2005Q4

REPORT INFORMATION
  Report Type: 
  Country: None (occurrence: None)
  Receive Date: 20051004
  Receipt Date: 20050921
  Transmission Date: 20060501
  Serious: Yes (Hospitalization)
  Sender: FDA-Public Use
  Company Number: 2005133399

PATIENT
  Age: 1 Year
  Sex: Female

DRUGS (1)
  1. GENOTONORM (SOMATROPIN) [Suspect]
     Indication: PRADER-WILLI SYNDROME
     Dosage: 0.3 MG (0.3 MG, DAILY)
     Dates: start: 20040818

REACTIONS (2)
  - SLEEP APNOEA SYNDROME [None]
  - TONSILLAR HYPERTROPHY [None]
